FAERS Safety Report 10971988 (Version 2)
Quarter: 2015Q2

REPORT INFORMATION
  Report Type: Spontaneous
  Country: JP (occurrence: JP)
  Receive Date: 20150331
  Receipt Date: 20150501
  Transmission Date: 20150821
  Serious: Yes (Hospitalization)
  Sender: FDA-Public Use
  Company Number: JP-ELI_LILLY_AND_COMPANY-JP201503009047

PATIENT
  Sex: Female

DRUGS (2)
  1. ZYPREXA [Suspect]
     Active Substance: OLANZAPINE
     Indication: SCHIZOPHRENIA
     Dosage: UNK
     Route: 048
  2. RISPERIDONE. [Concomitant]
     Active Substance: RISPERIDONE
     Indication: SCHIZOPHRENIA
     Dosage: UNK
     Route: 048

REACTIONS (7)
  - Paranoia [Unknown]
  - Hallucination [Recovering/Resolving]
  - Abnormal behaviour [Recovering/Resolving]
  - Intentional self-injury [Recovering/Resolving]
  - Maternal exposure during pregnancy [Unknown]
  - Persecutory delusion [Recovering/Resolving]
  - Maternal exposure before pregnancy [Unknown]
